FAERS Safety Report 9752444 (Version 1)
Quarter: 2013Q4

REPORT INFORMATION
  Report Type: Spontaneous
  Country: US (occurrence: US)
  Receive Date: 20131213
  Receipt Date: 20131213
  Transmission Date: 20140711
  Serious: No
  Sender: FDA-Public Use
  Company Number: US-PFIZER INC-2013354247

PATIENT
  Sex: Male

DRUGS (5)
  1. LYRICA [Suspect]
     Dosage: UNK
  2. ROBAXIN [Suspect]
     Dosage: UNK
  3. BACLOFEN [Suspect]
     Dosage: 60 MG, 10 MG - 6 TABLETS
  4. BACLOFEN [Suspect]
     Dosage: 50 MG, 10 MG - 5 TABLETS
  5. BACLOFEN [Suspect]
     Dosage: 60 MG, DAILY, 10 MG - 6 TABLETS

REACTIONS (2)
  - Vision blurred [Recovered/Resolved]
  - Abdominal rigidity [Recovering/Resolving]
